FAERS Safety Report 17994209 (Version 1)
Quarter: 2020Q3

REPORT INFORMATION
  Report Type: Spontaneous
  Country: US (occurrence: US)
  Receive Date: 20200707
  Receipt Date: 20200707
  Transmission Date: 20201103
  Serious: Yes (Other)
  Sender: FDA-Public Use
  Company Number: None

PATIENT
  Age: 26 Year
  Sex: Female
  Weight: 52.16 kg

DRUGS (1)
  1. KYLEENA [Suspect]
     Active Substance: LEVONORGESTREL
     Dates: start: 20180901, end: 20190201

REACTIONS (3)
  - Vulvovaginal discomfort [None]
  - Infection [None]
  - Vulvovaginal dryness [None]

NARRATIVE: CASE EVENT DATE: 20180901
